FAERS Safety Report 5949513-1 (Version None)
Quarter: 2008Q4

REPORT INFORMATION
  Report Type: 
  Country: None (occurrence: None)
  Receive Date: 20081112
  Receipt Date: 20081105
  Transmission Date: 20090506
  Serious: Yes (Life-Threatening, Hospitalization)
  Sender: FDA-Public Use
  Company Number: PHHO2008GB12161

PATIENT
  Sex: Male
  Weight: 80.3 kg

DRUGS (7)
  1. TASIGNA [Suspect]
     Indication: CHRONIC MYELOID LEUKAEMIA
     Dosage: 600 MG, BID
     Route: 048
     Dates: start: 20051026, end: 20081002
  2. TASIGNA [Suspect]
     Dosage: UNK
     Dates: start: 20081003, end: 20081006
  3. TASIGNA [Suspect]
     Dosage: 600 MG, BID
     Route: 048
     Dates: start: 20081007
  4. AMLODIPINE [Concomitant]
  5. SENNA [Concomitant]
  6. ACETAMINOPHEN [Concomitant]
  7. COLCHICINE [Concomitant]

REACTIONS (5)
  - ATRIAL TACHYCARDIA [None]
  - CHEST PAIN [None]
  - MYOCARDIAL INFARCTION [None]
  - PAIN IN EXTREMITY [None]
  - TROPONIN T INCREASED [None]
